FAERS Safety Report 5275298-0 (Version None)
Quarter: 2007Q1

REPORT INFORMATION
  Report Type: 
  Country: None (occurrence: None)
  Receive Date: 20070326
  Receipt Date: 20070315
  Transmission Date: 20070707
  Serious: Yes (Death)
  Sender: FDA-Public Use
  Company Number: JP-BAYER-200710190BYL

PATIENT
  Age: 89 Year
  Sex: Female

DRUGS (5)
  1. CIPROFLOXACIN [Suspect]
     Indication: INFECTION
     Dosage: TOTAL DAILY DOSE: 400 MG  UNIT DOSE: 200 MG
     Route: 048
     Dates: start: 20050723, end: 20050729
  2. RHEUMATREX [Suspect]
     Route: 048
  3. AMARYL [Suspect]
     Route: 048
  4. HYPEN [Suspect]
     Route: 048
  5. TIENAM [Suspect]
     Route: 040

REACTIONS (1)
  - PSEUDOMEMBRANOUS COLITIS [None]
